FAERS Safety Report 4473072-6 (Version None)
Quarter: 2004Q4

REPORT INFORMATION
  Report Type: 
  Country: None (occurrence: None)
  Receive Date: 20041013
  Receipt Date: 20041006
  Transmission Date: 20050328
  Serious: Yes (Hospitalization)
  Sender: FDA-Public Use
  Company Number: JP-GLAXOSMITHKLINE-B0347545A

PATIENT
  Age: 92 Year
  Sex: Female

DRUGS (9)
  1. ZOVIRAX [Suspect]
     Indication: HERPES ZOSTER
     Dosage: 250MG TWICE PER DAY
     Route: 042
     Dates: start: 20041004, end: 20041006
  2. LUVOX [Concomitant]
     Dosage: 25MG TWICE PER DAY
     Route: 048
  3. DOGMATYL [Concomitant]
     Dosage: 50MG TWICE PER DAY
     Route: 048
  4. NEUROTROPIN [Concomitant]
     Dosage: 4MG FOUR TIMES PER DAY
     Route: 048
  5. HOCHU-EKKI-TO [Concomitant]
     Route: 048
  6. CYANOCOBALAMIN [Concomitant]
     Dosage: 500MCG THREE TIMES PER DAY
     Route: 048
  7. ADETPHOS [Concomitant]
     Dosage: 20MG SIX TIMES PER DAY
     Route: 048
  8. NOVAMIN [Concomitant]
     Dosage: 5MG PER DAY
     Route: 048
  9. LEPETAN [Concomitant]
     Dosage: 1UNIT PER DAY

REACTIONS (1)
  - HYPONATRAEMIA [None]
